FAERS Safety Report 11546372 (Version 2)
Quarter: 2015Q4

REPORT INFORMATION
  Report Type: Spontaneous
  Country: US (occurrence: US)
  Receive Date: 20150924
  Receipt Date: 20151001
  Transmission Date: 20160304
  Serious: Yes (Other)
  Sender: FDA-Public Use
  Company Number: US-BIOMARINAP-US-2015-107363

PATIENT
  Age: 21 Year
  Sex: Female
  Weight: 20 kg

DRUGS (1)
  1. VIMIZIM [Suspect]
     Active Substance: ELOSULFASE ALFA
     Indication: MUCOPOLYSACCHARIDOSIS IV
     Dosage: 40 MG, QW
     Route: 042
     Dates: start: 20140701

REACTIONS (9)
  - Pruritus [Unknown]
  - Cough [Unknown]
  - Dysphagia [Unknown]
  - Rash macular [Unknown]
  - Heart rate increased [Unknown]
  - Dyspnoea [Unknown]
  - Throat irritation [Unknown]
  - Swelling face [Unknown]
  - Cheilitis [Unknown]

NARRATIVE: CASE EVENT DATE: 20150909
